FAERS Safety Report 8459686-7 (Version None)
Quarter: 2012Q2

REPORT INFORMATION
  Report Type: 
  Country: None (occurrence: None)
  Receive Date: 20120622
  Receipt Date: 20120619
  Transmission Date: 20120825
  Serious: Yes (Other)
  Sender: FDA-Public Use
  Company Number: US-ABBOTT-12P-163-0893246-00

PATIENT
  Sex: Male
  Weight: 90.8 kg

DRUGS (9)
  1. ANDROGEL [Suspect]
     Dates: start: 20100101, end: 20110201
  2. ASPIRIN [Concomitant]
     Indication: PROPHYLAXIS
  3. ANDROGEL [Suspect]
     Dates: start: 20081201
  4. ANDROGEL [Suspect]
     Dates: start: 20090101
  5. ASPIRIN [Concomitant]
     Indication: CARDIAC DISORDER
  6. ATENOLOL [Concomitant]
     Indication: HYPERTENSION
     Dosage: IN AM
  7. METAMUCIL-2 [Concomitant]
     Indication: CONSTIPATION
  8. LISINOPRIL [Concomitant]
     Indication: HYPERTENSION
     Dosage: DAILY AT BEDTIME
  9. ANDROGEL [Suspect]
     Indication: BLOOD TESTOSTERONE DECREASED
     Dosage: 4 PUMPS DAILY
     Dates: start: 20070101

REACTIONS (10)
  - PROSTATOMEGALY [None]
  - NOCTURIA [None]
  - URINARY RETENTION [None]
  - BACK PAIN [None]
  - NECK PAIN [None]
  - DYSURIA [None]
  - SLEEP APNOEA SYNDROME [None]
  - URINARY INCONTINENCE [None]
  - URINARY HESITATION [None]
  - SPINAL DISORDER [None]
